FAERS Safety Report 5329795-X (Version None)
Quarter: 2007Q2

REPORT INFORMATION
  Report Type: 
  Country: None (occurrence: None)
  Receive Date: 20070517
  Receipt Date: 20070517
  Transmission Date: 20071010
  Serious: Yes (Hospitalization)
  Sender: FDA-Public Use
  Company Number: None

PATIENT
  Age: 49 Year
  Sex: Female
  Weight: 66.6788 kg

DRUGS (1)
  1. ZELNORM [Suspect]
     Dosage: ONE PILL DAILY PO
     Route: 048
     Dates: start: 20040101, end: 20070331

REACTIONS (1)
  - MYOCARDIAL INFARCTION [None]
